FAERS Safety Report 5075050-5 (Version None)
Quarter: 2006Q3

REPORT INFORMATION
  Report Type: 
  Country: None (occurrence: None)
  Receive Date: 20060809
  Receipt Date: 20060110
  Transmission Date: 20061208
  Serious: Yes (Other)
  Sender: FDA-Public Use
  Company Number: US-BAYER-200610215BWH

PATIENT
  Age: 51 Year
  Sex: Male
  Weight: 114 kg

DRUGS (6)
  1. SORAFENIB [Suspect]
     Indication: METASTATIC RENAL CELL CARCINOMA
     Dosage: TOTAL DAILY DOSE: 800 MG  UNIT DOSE: 200 MG
     Route: 048
     Dates: start: 20050916, end: 20050922
  2. SORAFENIB [Suspect]
     Dosage: TOTAL DAILY DOSE: 400 MG  UNIT DOSE: 200 MG
     Route: 048
     Dates: start: 20060106, end: 20060109
  3. COUMADIN [Concomitant]
     Indication: DEEP VEIN THROMBOSIS
     Route: 048
  4. COUMADIN [Concomitant]
     Route: 048
     Dates: start: 20050320
  5. ZOLOFT [Concomitant]
  6. VITAMIN [Concomitant]

REACTIONS (3)
  - HEMIPARESIS [None]
  - HYPERTENSION [None]
  - METASTASES TO CENTRAL NERVOUS SYSTEM [None]
